FAERS Safety Report 24673676 (Version 3)
Quarter: 2024Q4

REPORT INFORMATION
  Report Type: Spontaneous
  Country: US (occurrence: US)
  Receive Date: 20241128
  Receipt Date: 20241230
  Transmission Date: 20250115
  Serious: No
  Sender: BIOVITRUM
  Company Number: US-BIOVITRUM-2024-US-014229

PATIENT
  Age: 80 Year
  Sex: Female

DRUGS (2)
  1. VONJO [Suspect]
     Active Substance: PACRITINIB
     Indication: Myelofibrosis
     Dosage: TWO CAPSULES TWICE DAILY
     Route: 048
     Dates: start: 20241106
  2. JAKAFI [Concomitant]
     Active Substance: RUXOLITINIB
     Indication: Product used for unknown indication

REACTIONS (6)
  - Product use issue [Unknown]
  - Abdominal pain upper [Recovering/Resolving]
  - Laboratory test abnormal [Unknown]
  - Intentional product misuse [Unknown]
  - White blood cell count increased [Unknown]
  - Decreased appetite [Unknown]
